FAERS Safety Report 5860726-X (Version None)
Quarter: 2008Q3

REPORT INFORMATION
  Report Type: 
  Country: None (occurrence: None)
  Receive Date: 20080827
  Receipt Date: 20080122
  Transmission Date: 20090109
  Serious: No
  Sender: FDA-Public Use
  Company Number: US-ABBOTT-07P-163-0427418-00

PATIENT
  Sex: Female

DRUGS (11)
  1. COATED PDS [Suspect]
     Indication: BLOOD TRIGLYCERIDES INCREASED
     Route: 048
     Dates: start: 20071130
  2. COATED PDS [Suspect]
     Route: 048
     Dates: end: 20071130
  3. METOPROLOL SUCCINATE [Concomitant]
     Indication: HYPERTENSION
     Route: 048
     Dates: start: 20051101
  4. ATORVASTATIN CALCIUM [Concomitant]
     Indication: BLOOD CHOLESTEROL
     Route: 048
  5. LISINOPRIL [Concomitant]
     Indication: HYPERTENSION
     Route: 048
     Dates: start: 20051101
  6. EZETIMIBE [Concomitant]
     Indication: BLOOD CHOLESTEROL
     Route: 048
     Dates: start: 20071112
  7. WOMENS VITAMINS [Concomitant]
     Indication: VITAMIN SUPPLEMENTATION
     Route: 048
  8. VITAMIN E [Concomitant]
     Indication: VITAMIN SUPPLEMENTATION
     Route: 048
  9. FOLIC ACID [Concomitant]
     Indication: VITAMIN SUPPLEMENTATION
     Route: 048
  10. TIME RELEASE VITAMIN C [Concomitant]
     Indication: VITAMIN SUPPLEMENTATION
     Route: 048
  11. FISH OIL [Concomitant]
     Indication: VITAMIN SUPPLEMENTATION
     Route: 048

REACTIONS (5)
  - DIARRHOEA [None]
  - ERYTHEMA [None]
  - FLUSHING [None]
  - NAUSEA [None]
  - PARAESTHESIA [None]
